FAERS Safety Report 5010921-7 (Version None)
Quarter: 2006Q2

REPORT INFORMATION
  Report Type: 
  Country: None (occurrence: None)
  Receive Date: 20060523
  Receipt Date: 20060523
  Transmission Date: 20061013
  Serious: No
  Sender: FDA-Public Use
  Company Number: None

PATIENT
  Age: 35 Year
  Sex: Male

DRUGS (2)
  1. METHADONE [Suspect]
     Indication: PAIN
  2. MORPHINE [Suspect]

REACTIONS (8)
  - CARDIO-RESPIRATORY ARREST [None]
  - EYE ROLLING [None]
  - INCREASED BRONCHIAL SECRETION [None]
  - LOSS OF CONSCIOUSNESS [None]
  - OXYGEN SATURATION DECREASED [None]
  - PERIPHERAL COLDNESS [None]
  - PUPIL FIXED [None]
  - VOMITING [None]
